FAERS Safety Report 18054419 (Version 1)
Quarter: 2020Q3

REPORT INFORMATION
  Report Type: Spontaneous
  Country: US (occurrence: US)
  Receive Date: 20200722
  Receipt Date: 20200722
  Transmission Date: 20201103
  Serious: No
  Sender: FDA-Public Use
  Company Number: None

PATIENT
  Sex: Female

DRUGS (1)
  1. HUMIRA [Suspect]
     Active Substance: ADALIMUMAB
     Indication: RHEUMATOID ARTHRITIS
     Dosage: ?          OTHER ROUTE:UNDER THE SKIN?FREQUENCY: EVERY 14 DAYS?
     Dates: start: 20191030

REACTIONS (2)
  - Drug ineffective [None]
  - Rheumatoid arthritis [None]
